FAERS Safety Report 8076630-5 (Version None)
Quarter: 2012Q1

REPORT INFORMATION
  Report Type: 
  Country: None (occurrence: None)
  Receive Date: 20120127
  Receipt Date: 20120120
  Transmission Date: 20120608
  Serious: Yes (Life-Threatening)
  Sender: FDA-Public Use
  Company Number: US-BAYER-2011-078006

PATIENT
  Age: 23 Year
  Sex: Female
  Weight: 65.76 kg

DRUGS (6)
  1. YAZ [Suspect]
  2. DROSPIRENONE AND ETHINYL ESTRADIOL [Suspect]
  3. NEOCON [Concomitant]
  4. YASMIN [Suspect]
  5. ALPRAZOLAM [Concomitant]
  6. LEXAPRO [Concomitant]

REACTIONS (7)
  - DEEP VEIN THROMBOSIS [None]
  - ANXIETY [None]
  - PULMONARY EMBOLISM [None]
  - THROMBOSIS [None]
  - INJURY [None]
  - PAIN [None]
  - ANHEDONIA [None]
